FAERS Safety Report 18308583 (Version 1)
Quarter: 2020Q3

REPORT INFORMATION
  Report Type: Spontaneous
  Country: RU (occurrence: RU)
  Receive Date: 20200924
  Receipt Date: 20200924
  Transmission Date: 20201103
  Serious: Yes (Hospitalization)
  Sender: FDA-Public Use
  Company Number: RU-TEVA-2020-RU-1832936

PATIENT
  Age: 68 Year
  Sex: Male

DRUGS (1)
  1. ATORVASTATIN [Suspect]
     Active Substance: ATORVASTATIN
     Indication: BLOOD CHOLESTEROL INCREASED
     Dosage: 20 MILLIGRAM DAILY;
     Route: 065

REACTIONS (5)
  - Bladder cancer [Unknown]
  - Dysuria [Unknown]
  - Rhabdomyolysis [Recovering/Resolving]
  - Loss of personal independence in daily activities [Recovering/Resolving]
  - General physical health deterioration [Recovering/Resolving]
